FAERS Safety Report 10090403 (Version 1)
Quarter: 2014Q2

REPORT INFORMATION
  Report Type: Spontaneous
  Country: US (occurrence: US)
  Receive Date: 20140421
  Receipt Date: 20140421
  Transmission Date: 20141212
  Serious: No
  Sender: FDA-Public Use
  Company Number: US-TEVA-476845USA

PATIENT
  Sex: Female

DRUGS (1)
  1. AZILECT [Suspect]
     Dates: start: 20140301

REACTIONS (6)
  - Dry mouth [Unknown]
  - Abnormal dreams [Unknown]
  - Depression [Unknown]
  - Weight decreased [Unknown]
  - Dyskinesia [Unknown]
  - Dizziness [Unknown]
